FAERS Safety Report 25221010 (Version 1)
Quarter: 2025Q2

REPORT INFORMATION
  Report Type: Spontaneous
  Country: US (occurrence: None)
  Receive Date: 20250421
  Receipt Date: 20250421
  Transmission Date: 20250717
  Serious: Yes (Hospitalization)
  Sender: FDA-CTU
  Company Number: None

PATIENT
  Age: 76 Year
  Sex: Female

DRUGS (10)
  1. TACROLIMUS [Suspect]
     Active Substance: TACROLIMUS
     Indication: Renal transplant
     Dosage: FREQUENCY : TWICE A DAY;?
     Route: 048
     Dates: start: 20241217
  2. EPOGEN [Concomitant]
     Active Substance: ERYTHROPOIETIN
  3. FERROUS SULFATE [Concomitant]
     Active Substance: FERROUS SULFATE
  4. TRESIBA [Concomitant]
     Active Substance: INSULIN DEGLUDEC
  5. PRAVASTATIN [Concomitant]
     Active Substance: PRAVASTATIN
  6. INSULIN LISPRO [Concomitant]
     Active Substance: INSULIN LISPRO
  7. VITAMIN D3 [Concomitant]
     Active Substance: CHOLECALCIFEROL
  8. ACETAMINOPHEN [Concomitant]
     Active Substance: ACETAMINOPHEN
  9. MYCOPHENOLIC ACID [Concomitant]
     Active Substance: MYCOPHENOLIC ACID
  10. VALGANCICLOVIR [Concomitant]
     Active Substance: VALGANCICLOVIR

REACTIONS (7)
  - Renal disorder [None]
  - Viral infection [None]
  - Haematological infection [None]
  - Gastrointestinal disorder [None]
  - Cytomegalovirus infection [None]
  - Clostridium difficile infection [None]
  - COVID-19 [None]
